FAERS Safety Report 14837472 (Version 1)
Quarter: 2018Q2

REPORT INFORMATION
  Report Type: Spontaneous
  Country: FR (occurrence: FR)
  Receive Date: 20180502
  Receipt Date: 20180502
  Transmission Date: 20180711
  Serious: Yes (Other)
  Sender: FDA-Public Use
  Company Number: FR-MERCK KGAA-2047005

PATIENT
  Age: 59 Year
  Sex: Female

DRUGS (1)
  1. NOVOTHYROX [Suspect]
     Active Substance: LEVOTHYROXINE SODIUM
     Indication: GOITRE
     Dates: start: 2017

REACTIONS (14)
  - Headache [None]
  - Crying [None]
  - Asthenia [Recovering/Resolving]
  - Stress [Recovering/Resolving]
  - Thyroxine free increased [None]
  - Surgery [None]
  - Fatigue [None]
  - Mood swings [None]
  - Marital problem [None]
  - Anxiety [Recovering/Resolving]
  - Blood creatine increased [None]
  - Alopecia [Recovering/Resolving]
  - Weight increased [Recovering/Resolving]
  - Chest discomfort [Recovering/Resolving]

NARRATIVE: CASE EVENT DATE: 20170223
